FAERS Safety Report 20288011 (Version 2)
Quarter: 2022Q2

REPORT INFORMATION
  Report Type: Spontaneous
  Country: CA (occurrence: CA)
  Receive Date: 20220104
  Receipt Date: 20220418
  Transmission Date: 20220721
  Serious: Yes (Other)
  Sender: FDA-Public Use
  Company Number: CA-SAMSUNG BIOEPIS-SB-2021-30699

PATIENT
  Age: 58 Year
  Sex: Female
  Weight: 84 kg

DRUGS (1)
  1. INFLIXIMAB [Suspect]
     Active Substance: INFLIXIMAB
     Indication: Colitis ulcerative
     Route: 042

REACTIONS (8)
  - Weight increased [Unknown]
  - Arthralgia [Unknown]
  - Condition aggravated [Unknown]
  - Osteomyelitis [Unknown]
  - Infection [Unknown]
  - Swelling [Unknown]
  - Intentional product use issue [Unknown]
  - Off label use [Unknown]
